FAERS Safety Report 9745304 (Version 2)
Quarter: 2014Q1

REPORT INFORMATION
  Report Type: Report from Study
  Country: JP (occurrence: JP)
  Receive Date: 20131211
  Receipt Date: 20140212
  Transmission Date: 20141002
  Serious: Yes (Hospitalization)
  Sender: FDA-Public Use
  Company Number: JP-JNJFOC-20131204251

PATIENT
  Age: 61 Year
  Sex: Male
  Weight: 59 kg

DRUGS (11)
  1. SIMPONI [Suspect]
     Indication: RHEUMATOID ARTHRITIS
     Route: 058
     Dates: start: 20130423, end: 20130423
  2. SIMPONI [Suspect]
     Indication: RHEUMATOID ARTHRITIS
     Route: 058
     Dates: start: 20130328, end: 20130328
  3. PREDONINE [Concomitant]
     Indication: RHEUMATOID ARTHRITIS
     Route: 048
  4. PREDONINE [Concomitant]
     Indication: RHEUMATOID ARTHRITIS
     Route: 048
     Dates: end: 20130425
  5. LOXONIN [Concomitant]
     Indication: RHEUMATOID ARTHRITIS
     Route: 065
  6. LOXONIN [Concomitant]
     Indication: RHEUMATOID ARTHRITIS
     Route: 062
  7. GASMOTIN [Concomitant]
     Indication: PROPHYLAXIS
     Route: 048
  8. PROTECADIN [Concomitant]
     Indication: PROPHYLAXIS
     Route: 048
  9. SALAZOSULFAPYRIDINE [Concomitant]
     Indication: RHEUMATOID ARTHRITIS
     Route: 065
     Dates: start: 20130606
  10. TACROLIMUS HYDRATE [Concomitant]
     Indication: RHEUMATOID ARTHRITIS
     Route: 065
     Dates: start: 20130924
  11. TSUMARA RIKKUNSHITO EXTRACT GRANULES [Concomitant]
     Indication: PROPHYLAXIS
     Route: 048

REACTIONS (1)
  - Lung adenocarcinoma stage III [Recovering/Resolving]
